FAERS Safety Report 4598170-8 (Version None)
Quarter: 2005Q1

REPORT INFORMATION
  Report Type: 
  Country: None (occurrence: None)
  Receive Date: 20050301
  Receipt Date: 20050301
  Transmission Date: 20050727
  Serious: Yes (Hospitalization)
  Sender: FDA-Public Use
  Company Number: None

PATIENT
  Age: 79 Year
  Sex: Male
  Weight: 101.8 kg

DRUGS (12)
  1. ASPIRIN [Suspect]
     Indication: ACUTE MYOCARDIAL INFARCTION
     Dosage: 81 MG PO DAILY
     Route: 048
  2. WARFARIN SODIUM [Suspect]
     Indication: ATRIAL FLUTTER
     Dosage: 5 MG PO Q HS
     Route: 048
  3. LISINOPRIL [Concomitant]
  4. HUMULIN N [Concomitant]
  5. NOVOLIN N [Concomitant]
  6. DOCUSATE [Concomitant]
  7. FUROSEMIDE [Concomitant]
  8. K-PHOS NEUTRAL [Concomitant]
  9. SIMVASTATIN [Concomitant]
  10. SPIRONOLACTONE [Concomitant]
  11. ASPIRIN [Concomitant]
  12. COUMADIN [Concomitant]

REACTIONS (9)
  - ANGIOPATHY [None]
  - DIZZINESS [None]
  - FAECES DISCOLOURED [None]
  - HAEMATEMESIS [None]
  - HAEMATOCRIT DECREASED [None]
  - HAEMORRHAGE [None]
  - HYPERCHLORHYDRIA [None]
  - MALLORY-WEISS SYNDROME [None]
  - VOMITING [None]
